FAERS Safety Report 25538140 (Version 1)
Quarter: 2025Q3

REPORT INFORMATION
  Report Type: Report from Study
  Country: PK (occurrence: PK)
  Receive Date: 20250710
  Receipt Date: 20250710
  Transmission Date: 20251021
  Serious: Yes (Death, Other)
  Sender: MYLAN
  Company Number: PK-MYLANLABS-2025M1056850

PATIENT
  Sex: Female

DRUGS (3)
  1. GABAPENTIN [Suspect]
     Active Substance: GABAPENTIN
     Indication: Fracture
     Dosage: 300 MILLIGRAM, HS
  2. ACETAMINOPHEN [Suspect]
     Active Substance: ACETAMINOPHEN
     Indication: Fracture
     Dosage: 1000 MILLIGRAM, QID
  3. DICLOFENAC [Suspect]
     Active Substance: DICLOFENAC
     Indication: Fracture
     Dosage: 50 MILLIGRAM, TID

REACTIONS (2)
  - Death [Fatal]
  - Off label use [Unknown]
